FAERS Safety Report 10230677 (Version 2)
Quarter: 2014Q2

REPORT INFORMATION
  Report Type: Spontaneous
  Country: US (occurrence: US)
  Receive Date: 20140611
  Receipt Date: 20140616
  Transmission Date: 20141212
  Serious: No
  Sender: FDA-Public Use
  Company Number: US-PFIZER INC-2014158467

PATIENT
  Age: 73 Year
  Sex: Male
  Weight: 78.91 kg

DRUGS (4)
  1. LYRICA [Suspect]
     Indication: DIABETIC NEUROPATHY
     Dosage: 100 MG, UNK
     Dates: start: 2013
  2. LYRICA [Suspect]
     Indication: NEUROPATHY PERIPHERAL
  3. COLACE [Concomitant]
     Indication: CONSTIPATION
     Dosage: 10 MG, UNK
  4. SENNA [Concomitant]
     Indication: CONSTIPATION
     Dosage: 8.6 MG, DAILY

REACTIONS (10)
  - Joint swelling [Unknown]
  - Peripheral swelling [Not Recovered/Not Resolved]
  - Malaise [Unknown]
  - Product quality issue [Unknown]
  - Rhinorrhoea [Not Recovered/Not Resolved]
  - Nasal discomfort [Not Recovered/Not Resolved]
  - Nasal congestion [Not Recovered/Not Resolved]
  - Upper respiratory tract congestion [Not Recovered/Not Resolved]
  - Oropharyngeal pain [Not Recovered/Not Resolved]
  - Renal disorder [Not Recovered/Not Resolved]
